FAERS Safety Report 25936051 (Version 1)
Quarter: 2025Q4

REPORT INFORMATION
  Report Type: Spontaneous
  Country: US (occurrence: US)
  Receive Date: 20251017
  Receipt Date: 20251017
  Transmission Date: 20260118
  Serious: Yes (Hospitalization)
  Sender: INCYTE
  Company Number: US-EVENT-004636

PATIENT
  Age: 60 Year

DRUGS (1)
  1. OPZELURA [Suspect]
     Active Substance: RUXOLITINIB PHOSPHATE
     Indication: Product used for unknown indication
     Dosage: 1.5 PERCENT, BID
     Route: 065

REACTIONS (4)
  - Psoriasis [Unknown]
  - Localised infection [Unknown]
  - Rash [Unknown]
  - Product distribution issue [Unknown]
